FAERS Safety Report 16412181 (Version 1)
Quarter: 2019Q2

REPORT INFORMATION
  Report Type: Report from Study
  Country: US (occurrence: US)
  Receive Date: 20190610
  Receipt Date: 20190610
  Transmission Date: 20190711
  Serious: Yes (Other)
  Sender: FDA-Public Use
  Company Number: US-JNJFOC-20190523665

PATIENT
  Age: 67 Year
  Sex: Male

DRUGS (12)
  1. ATORVASTATIN [Concomitant]
     Active Substance: ATORVASTATIN
  2. GLIMEPIRIDE. [Concomitant]
     Active Substance: GLIMEPIRIDE
  3. LORATADINE. [Concomitant]
     Active Substance: LORATADINE
  4. METFORMIN [Concomitant]
     Active Substance: METFORMIN HYDROCHLORIDE
  5. IMBRUVICA [Suspect]
     Active Substance: IBRUTINIB
     Indication: CHRONIC LYMPHOCYTIC LEUKAEMIA
     Route: 048
     Dates: start: 20190424, end: 20190506
  6. WARFARIN [Concomitant]
     Active Substance: WARFARIN
     Dosage: UNK (MONDAYS 7 MG ONCE A DAY/TUESDAY, SUNDAY 6 MG ONCE A DAY )
  7. LOSARTAN POTASSIUM. [Concomitant]
     Active Substance: LOSARTAN POTASSIUM
  8. TRAMADOL. [Concomitant]
     Active Substance: TRAMADOL
  9. FARXIGA [Concomitant]
     Active Substance: DAPAGLIFLOZIN PROPANEDIOL
  10. BIFIDOBACTERIUM LACTIS [Concomitant]
     Active Substance: BIFIDOBACTERIUM ANIMALIS LACTIS
     Dosage: UNK (3 BILLION ACTIVE CULTURES PER CAPSULE )
  11. FLONASE [Concomitant]
     Active Substance: FLUTICASONE PROPIONATE
  12. HYDROCODONE/ACETAMINOPHEN [Concomitant]
     Active Substance: ACETAMINOPHEN\HYDROCODONE

REACTIONS (7)
  - Sinus disorder [Not Recovered/Not Resolved]
  - Hypoacusis [Unknown]
  - Increased tendency to bruise [Not Recovered/Not Resolved]
  - Therapeutic response unexpected [Unknown]
  - Haematuria [Recovered/Resolved]
  - Internal haemorrhage [Unknown]
  - Cough [Not Recovered/Not Resolved]

NARRATIVE: CASE EVENT DATE: 201904
